FAERS Safety Report 9314479 (Version 2)
Quarter: 2013Q4

REPORT INFORMATION
  Report Type: Spontaneous
  Country: US (occurrence: US)
  Receive Date: 20130529
  Receipt Date: 20131126
  Transmission Date: 20140711
  Serious: No
  Sender: FDA-Public Use
  Company Number: US-PFIZER INC-2013162366

PATIENT
  Age: 62 Year
  Sex: Male

DRUGS (2)
  1. INLYTA [Suspect]
     Indication: RENAL CANCER
     Dosage: 5 MG, 2X/DAY
     Dates: start: 20121127
  2. INLYTA [Suspect]
     Dosage: 5 MG, 2X/DAY
     Dates: start: 201305

REACTIONS (2)
  - Hypertension [Recovered/Resolved]
  - Diarrhoea [Recovered/Resolved]
